FAERS Safety Report 5024472-7 (Version None)
Quarter: 2006Q2

REPORT INFORMATION
  Report Type: 
  Country: None (occurrence: None)
  Receive Date: 20060613
  Receipt Date: 20060303
  Transmission Date: 20061013
  Serious: Yes (Death, Hospitalization)
  Sender: FDA-Public Use
  Company Number: PHHO2006JP03773

PATIENT
  Age: 78 Year
  Sex: Male

DRUGS (3)
  1. DIOVAN [Suspect]
     Indication: HYPERTENSION
     Dosage: 80 MG, QD
     Route: 048
     Dates: start: 20030221, end: 20051021
  2. BEZAFIBRATE [Concomitant]
     Dosage: 200 MG / DAY
     Route: 048
     Dates: start: 20030122, end: 20041021
  3. CARDENALIN [Concomitant]
     Dosage: 2 MG / DAY
     Route: 048
     Dates: start: 20030319, end: 20050314

REACTIONS (4)
  - ABDOMINAL DISTENSION [None]
  - DECREASED APPETITE [None]
  - GASTRIC CANCER [None]
  - MALIGNANT ASCITES [None]
